FAERS Safety Report 16810801 (Version 1)
Quarter: 2019Q3

REPORT INFORMATION
  Report Type: Spontaneous
  Country: CA (occurrence: CA)
  Receive Date: 20190916
  Receipt Date: 20190916
  Transmission Date: 20191005
  Serious: Yes (Death, Other)
  Sender: FDA-Public Use
  Company Number: CA-PFIZER INC-2019396065

PATIENT
  Age: 3 Year
  Sex: Male

DRUGS (4)
  1. CYCLOPHOSPHAMIDE. [Suspect]
     Active Substance: CYCLOPHOSPHAMIDE
     Indication: IMMUNOSUPPRESSANT DRUG THERAPY
     Dosage: UNK
  2. METHYLPREDNISOLONE. [Suspect]
     Active Substance: METHYLPREDNISOLONE
     Indication: IMMUNOSUPPRESSANT DRUG THERAPY
     Dosage: UNK
  3. CANCIDAS [Suspect]
     Active Substance: CASPOFUNGIN ACETATE
     Dosage: UNK
  4. CICLOSPORIN [Suspect]
     Active Substance: CYCLOSPORINE
     Dosage: UNK

REACTIONS (4)
  - Central nervous system fungal infection [Unknown]
  - Fungal infection [Unknown]
  - Systemic mycosis [Unknown]
  - Death [Fatal]
